FAERS Safety Report 11039493 (Version 2)
Quarter: 2015Q2

REPORT INFORMATION
  Report Type: Spontaneous
  Country: US (occurrence: US)
  Receive Date: 20150416
  Receipt Date: 20150525
  Transmission Date: 20150821
  Serious: No
  Sender: FDA-Public Use
  Company Number: US-JNJFOC-20130315727

PATIENT
  Age: 66 Year
  Sex: Female

DRUGS (4)
  1. RYTHMOL [Concomitant]
     Active Substance: PROPAFENONE HYDROCHLORIDE
     Route: 065
  2. XARELTO [Suspect]
     Active Substance: RIVAROXABAN
     Indication: ATRIAL FIBRILLATION
     Route: 048
     Dates: start: 201301
  3. METOPROLOL [Concomitant]
     Active Substance: METOPROLOL
     Route: 065
  4. DIGOXIN. [Concomitant]
     Active Substance: DIGOXIN
     Route: 065

REACTIONS (1)
  - Swelling [Unknown]

NARRATIVE: CASE EVENT DATE: 20130322
